FAERS Safety Report 5282272-7 (Version None)
Quarter: 2007Q1

REPORT INFORMATION
  Report Type: 
  Country: None (occurrence: None)
  Receive Date: 20070331
  Receipt Date: 20070320
  Transmission Date: 20070707
  Serious: Yes (Other)
  Sender: FDA-Public Use
  Company Number: US-PFIZER INC-2007023215

PATIENT
  Sex: Female

DRUGS (2)
  1. NORVASC [Suspect]
     Indication: HYPERTENSION
  2. LISINOPRIL [Suspect]
     Indication: HYPERTENSION
     Dates: start: 20050101, end: 20060801

REACTIONS (2)
  - LABORATORY TEST ABNORMAL [None]
  - RENAL DISORDER [None]
